FAERS Safety Report 10920769 (Version 1)
Quarter: 2015Q1

REPORT INFORMATION
  Report Type: Spontaneous
  Country: US (occurrence: None)
  Receive Date: 20150312
  Receipt Date: 20150312
  Transmission Date: 20150721
  Serious: No
  Sender: FDA-Public Use
  Company Number: None

PATIENT
  Age: 64 Year
  Sex: Male

DRUGS (1)
  1. SIMPONI [Suspect]
     Active Substance: GOLIMUMAB
     Indication: PSORIATIC ARTHROPATHY
     Dosage: 50MG, EVERY 28 DAYS, SUBCUTANEOUSLY
     Route: 058
     Dates: start: 20130731

REACTIONS (2)
  - Erythema [None]
  - Peripheral swelling [None]
